FAERS Safety Report 10698547 (Version 1)
Quarter: 2015Q1

REPORT INFORMATION
  Report Type: Spontaneous
  Country: FR (occurrence: FR)
  Receive Date: 20150108
  Receipt Date: 20150108
  Transmission Date: 20150721
  Serious: Yes (Death)
  Sender: FDA-Public Use
  Company Number: FR-BRISTOL-MYERS SQUIBB COMPANY-BMS-2014-005767

PATIENT
  Age: 89 Year
  Sex: Male

DRUGS (6)
  1. BISOCE [Concomitant]
     Active Substance: BISOPROLOL
     Indication: PRODUCT USED FOR UNKNOWN INDICATION
     Dosage: 0.5 MG, QD
     Route: 065
     Dates: end: 20141210
  2. LEVOFLOXACINE                      /01278901/ [Suspect]
     Active Substance: LEVOFLOXACIN
     Indication: SEPSIS
     Dosage: 500 MG, QD
     Route: 048
     Dates: start: 20141206, end: 20141210
  3. CLOZAPINE. [Concomitant]
     Active Substance: CLOZAPINE
     Indication: PRODUCT USED FOR UNKNOWN INDICATION
     Dosage: 5 MG, UNK
     Route: 048
     Dates: start: 20141029, end: 20141210
  4. ZYVOXID [Suspect]
     Active Substance: LINEZOLID
     Indication: SEPSIS
     Dosage: 600 MG, BID
     Route: 048
     Dates: start: 20141208, end: 20141210
  5. AZACTAM [Suspect]
     Active Substance: AZTREONAM
     Indication: SEPSIS
     Dosage: 2 DF, QD
     Route: 030
     Dates: start: 20141206, end: 20141210
  6. PLAVIX [Concomitant]
     Active Substance: CLOPIDOGREL BISULFATE
     Indication: PRODUCT USED FOR UNKNOWN INDICATION
     Dosage: 1 DF, QD
     Route: 048
     Dates: end: 20141210

REACTIONS (1)
  - Sudden death [Fatal]

NARRATIVE: CASE EVENT DATE: 20141210
